FAERS Safety Report 19968215 (Version 2)
Quarter: 2021Q4

REPORT INFORMATION
  Report Type: Spontaneous
  Country: US (occurrence: None)
  Receive Date: 20211019
  Receipt Date: 20211202
  Transmission Date: 20220304
  Serious: Yes (Other)
  Sender: FDA-Public Use
  Company Number: 2021A765718

PATIENT
  Sex: Female
  Weight: 113.9 kg

DRUGS (3)
  1. BREZTRI [Suspect]
     Active Substance: BUDESONIDE\FORMOTEROL\GLYCOPYRROLATE
     Indication: Chronic obstructive pulmonary disease
     Dosage: 160MCG/7.2MCG/4.8MCG 2 PUFFS BID
     Route: 055
     Dates: start: 20210607
  2. SYMBICORT [Suspect]
     Active Substance: BUDESONIDE\FORMOTEROL FUMARATE DIHYDRATE
     Indication: Chronic obstructive pulmonary disease
     Dosage: UNKNOWN UNKNOWN
     Route: 055
     Dates: end: 20210606
  3. COVID VACCINE [Concomitant]
     Dosage: SECOND VACCINE SHOT
     Route: 065

REACTIONS (4)
  - Dyspnoea [Not Recovered/Not Resolved]
  - Incorrect dose administered by device [Unknown]
  - Device malfunction [Not Recovered/Not Resolved]
  - Drug delivery system issue [Unknown]

NARRATIVE: CASE EVENT DATE: 20210320
